FAERS Safety Report 9749603 (Version 2)
Quarter: 2013Q4

REPORT INFORMATION
  Report Type: Report from Study
  Country: US (occurrence: US)
  Receive Date: 20131212
  Receipt Date: 20131212
  Transmission Date: 20140711
  Serious: Yes (Other)
  Sender: FDA-Public Use
  Company Number: US-BAXTER-2013BAX015147

PATIENT
  Age: 37 Year
  Sex: Female

DRUGS (2)
  1. GAMMAGARD S/D [Suspect]
     Indication: IMMUNODEFICIENCY COMMON VARIABLE
     Route: 042
     Dates: end: 20131017
  2. GAMMAGARD LIQUID [Suspect]
     Indication: IMMUNODEFICIENCY COMMON VARIABLE
     Route: 058
     Dates: start: 20131017

REACTIONS (4)
  - Staphylococcal infection [Not Recovered/Not Resolved]
  - Headache [Unknown]
  - Nausea [Unknown]
  - Infusion site pain [Unknown]
